FAERS Safety Report 7333345-6 (Version None)
Quarter: 2011Q1

REPORT INFORMATION
  Report Type: 
  Country: None (occurrence: None)
  Receive Date: 20110304
  Receipt Date: 20110228
  Transmission Date: 20110831
  Serious: Yes (Other)
  Sender: FDA-Public Use
  Company Number: US-PFIZER INC-2011043923

PATIENT
  Sex: Male
  Weight: 114 kg

DRUGS (9)
  1. GABAPENTIN [Concomitant]
     Dosage: 300 MG, AS NEEDED
  2. OXYCODONE HCL AND ACETAMINOPHEN [Suspect]
     Indication: MUSCULOSKELETAL PAIN
     Dosage: 325 MG, AS NEEDED
     Route: 048
     Dates: start: 20110222, end: 20110226
  3. HYDROCODONE [Concomitant]
     Dosage: UNK
  4. VITAMIN D [Concomitant]
     Dosage: UNK
  5. ACETYLSALICYLIC ACID [Concomitant]
     Dosage: 81 MG, UNK
  6. PRISTIQ [Suspect]
     Indication: DEPRESSION
     Dosage: 50 MG, DAILY
     Route: 048
     Dates: start: 20110130
  7. NABUMETONE [Concomitant]
     Dosage: 500 MG, 3X/DAY
  8. PRILOSEC [Concomitant]
     Dosage: 20 MG, DAILY
  9. PRISTIQ [Suspect]
     Indication: DRUG THERAPY CHANGED

REACTIONS (6)
  - RESTLESSNESS [None]
  - CONSTIPATION [None]
  - ARTHROPATHY [None]
  - PANIC ATTACK [None]
  - INSOMNIA [None]
  - MUSCULOSKELETAL PAIN [None]
